FAERS Safety Report 13707848 (Version 1)
Quarter: 2017Q2

REPORT INFORMATION
  Report Type: Spontaneous
  Country: US (occurrence: US)
  Receive Date: 20170630
  Receipt Date: 20170630
  Transmission Date: 20170830
  Serious: Yes (Death, Other)
  Sender: FDA-Public Use
  Company Number: PHHY2017US093225

PATIENT
  Age: 64 Year
  Sex: Female

DRUGS (7)
  1. CLADRIBINE. [Suspect]
     Active Substance: CLADRIBINE
     Indication: ACUTE MYELOID LEUKAEMIA
     Route: 065
  2. CYTARABINE. [Suspect]
     Active Substance: CYTARABINE
     Dosage: HIGH DOSE
     Route: 065
  3. CYTARABINE. [Suspect]
     Active Substance: CYTARABINE
     Indication: ACUTE MYELOID LEUKAEMIA
     Route: 065
  4. MITOXANTRONE [Suspect]
     Active Substance: MITOXANTRONE HYDROCHLORIDE
     Indication: ACUTE MYELOID LEUKAEMIA
     Dosage: 10 MG/M2, FOR 3 DOSES
     Route: 065
  5. DEXRAZOXANE. [Suspect]
     Active Substance: DEXRAZOXANE
     Indication: PRODUCT USED FOR UNKNOWN INDICATION
     Dosage: 1200 MG,
     Route: 042
  6. FILGRASTIM [Suspect]
     Active Substance: FILGRASTIM
     Indication: ACUTE MYELOID LEUKAEMIA
     Route: 065
  7. CYTARABINE. [Suspect]
     Active Substance: CYTARABINE
     Dosage: LOW DOSE
     Route: 065

REACTIONS (9)
  - Hydronephrosis [Fatal]
  - Pancytopenia [Unknown]
  - Troponin I increased [Unknown]
  - Presyncope [Unknown]
  - Transaminases increased [Fatal]
  - BK virus infection [Fatal]
  - Cerebrovascular accident [Fatal]
  - Febrile neutropenia [Fatal]
  - Electrocardiogram T wave abnormal [Unknown]
